FAERS Safety Report 7919805-5 (Version None)
Quarter: 2011Q4

REPORT INFORMATION
  Report Type: 
  Country: None (occurrence: None)
  Receive Date: 20111117
  Receipt Date: 20111110
  Transmission Date: 20120403
  Serious: Yes (Other)
  Sender: FDA-Public Use
  Company Number: DK-UCBSA-044479

PATIENT
  Age: 33 Year
  Sex: Male

DRUGS (1)
  1. CIMZIA [Suspect]
     Indication: PSORIATIC ARTHROPATHY
     Route: 058
     Dates: start: 20110913, end: 20111026

REACTIONS (2)
  - DRUG INEFFECTIVE [None]
  - PSORIASIS [None]
